FAERS Safety Report 7508944-9 (Version None)
Quarter: 2011Q2

REPORT INFORMATION
  Report Type: 
  Country: None (occurrence: None)
  Receive Date: 20110527
  Receipt Date: 20110519
  Transmission Date: 20111010
  Serious: Yes (Hospitalization, Other)
  Sender: FDA-Public Use
  Company Number: BR-SANOFI-AVENTIS-2011SA031535

PATIENT
  Age: 87 Year
  Sex: Male

DRUGS (1)
  1. LASIX [Suspect]

REACTIONS (11)
  - MUSCULAR WEAKNESS [None]
  - ACNE [None]
  - STUPOR [None]
  - TREMOR [None]
  - COUGH [None]
  - OEDEMA PERIPHERAL [None]
  - BLOOD PRESSURE INADEQUATELY CONTROLLED [None]
  - DYSSTASIA [None]
  - FACIAL SPASM [None]
  - URINARY INCONTINENCE [None]
  - HYPOTENSION [None]
